FAERS Safety Report 24695502 (Version 1)
Quarter: 2024Q4

REPORT INFORMATION
  Report Type: Spontaneous
  Country: BR (occurrence: BR)
  Receive Date: 20241204
  Receipt Date: 20241204
  Transmission Date: 20250115
  Serious: Yes (Other)
  Sender: ALKEM
  Company Number: None

PATIENT
  Age: 53 Year
  Sex: Male

DRUGS (3)
  1. MYCOPHENOLATE MOFETIL [Suspect]
     Active Substance: MYCOPHENOLATE MOFETIL
     Indication: Immunosuppressant drug therapy
     Dosage: 2 GRAM, QD
     Route: 065
  2. CYCLOSPORINE [Suspect]
     Active Substance: CYCLOSPORINE
     Indication: Immunosuppressant drug therapy
     Dosage: 150 MILLIGRAM, QD
     Route: 065
  3. PREDNISONE [Suspect]
     Active Substance: PREDNISONE
     Indication: Immunosuppressant drug therapy
     Dosage: 5 MILLIGRAM, QD
     Route: 065

REACTIONS (8)
  - Infection reactivation [Recovered/Resolved]
  - Mucocutaneous leishmaniasis [Recovered/Resolved]
  - Nasal septum deviation [Unknown]
  - Hyperaemia [Unknown]
  - Nasal polyps [Unknown]
  - Paranasal cyst [Unknown]
  - Sinusitis [Recovering/Resolving]
  - Varicella zoster virus infection [Unknown]

NARRATIVE: CASE EVENT DATE: 20030801
